FAERS Safety Report 7654344-0 (Version None)
Quarter: 2011Q3

REPORT INFORMATION
  Report Type: 
  Country: None (occurrence: None)
  Receive Date: 20110803
  Receipt Date: 20110726
  Transmission Date: 20111222
  Serious: Yes (Other)
  Sender: FDA-Public Use
  Company Number: US-ASTRAZENECA-2009UW19098

PATIENT
  Age: 30 Year
  Sex: Male
  Weight: 108.4 kg

DRUGS (38)
  1. ABILIFY [Concomitant]
  2. ACTOS [Concomitant]
     Route: 048
     Dates: start: 20090626
  3. GEODON [Concomitant]
     Dates: start: 20041230
  4. SEROQUEL [Suspect]
     Route: 048
     Dates: start: 20070801
  5. THORAZINE [Concomitant]
  6. PROPRANOLOL [Concomitant]
     Dates: start: 20010426
  7. LITHIUM CARBONATE [Concomitant]
     Dosage: 300 MG TK 2 TS PO QAM AND TK 2 TS PO QPM
     Dates: start: 20000122
  8. SEROQUEL [Suspect]
     Indication: AFFECTIVE DISORDER
     Route: 048
     Dates: start: 19920101, end: 20080601
  9. SEROQUEL [Suspect]
     Dosage: 100 MG TK 3 TS PO QAM AND TK 4 TS PO QPM
     Route: 048
     Dates: start: 20000122
  10. SEROQUEL [Suspect]
     Route: 048
     Dates: start: 20070801
  11. ATIVAN [Concomitant]
     Indication: AGITATION
     Route: 048
  12. ATIVAN [Concomitant]
     Dosage: 0.5 MG TID AND QID
     Route: 048
     Dates: start: 20070801
  13. MORPHINE [Concomitant]
     Dosage: 2 ML
     Route: 042
     Dates: start: 20100101
  14. SEROQUEL [Suspect]
     Route: 048
     Dates: start: 20010426
  15. SEROQUEL [Suspect]
     Dosage: 200 MG BID AND HS
     Route: 048
     Dates: start: 20020901
  16. SEROQUEL [Suspect]
     Route: 048
     Dates: end: 20041230
  17. LITHIUM CARBONATE [Concomitant]
     Dates: start: 20041201
  18. LITHIUM CARBONATE [Concomitant]
     Dosage: 300 MG , 2 BID
     Dates: start: 20010426
  19. SEROQUEL [Suspect]
     Indication: SCHIZOAFFECTIVE DISORDER
     Route: 048
     Dates: start: 19920101, end: 20080601
  20. SEROQUEL [Suspect]
     Route: 048
     Dates: start: 20010426
  21. CLOZAPINE [Concomitant]
     Dosage: 100 MG 2 AT AM AND 3 AT HS
     Dates: start: 20010426
  22. DEPAKOTE ER [Concomitant]
     Route: 048
     Dates: start: 20050701
  23. SEROQUEL [Suspect]
     Dosage: 200 MG BID AND HS
     Route: 048
     Dates: start: 20020901
  24. SEROQUEL [Suspect]
     Dosage: 300 MG BID AND HS
     Route: 048
     Dates: start: 20021101
  25. SEROQUEL [Suspect]
     Dosage: 300 MG BID AND HS
     Route: 048
     Dates: start: 20021101
  26. SEROQUEL [Suspect]
     Route: 048
     Dates: end: 20041230
  27. HALDOL [Concomitant]
     Dosage: 5 MG NOON
     Route: 048
     Dates: start: 20050701
  28. SYMBYAX [Concomitant]
  29. DILANTIN [Concomitant]
     Route: 048
     Dates: start: 20050701
  30. DEPAKOTE ER [Concomitant]
     Dates: start: 20010426
  31. SEROQUEL [Suspect]
     Dosage: 100 MG TK 3 TS PO QAM AND TK 4 TS PO QPM
     Route: 048
     Dates: start: 20000122
  32. HALDOL [Concomitant]
     Route: 048
     Dates: start: 20050701
  33. RISPERDAL [Concomitant]
  34. ZYPREXA [Concomitant]
  35. DEPAKOTE ER [Concomitant]
     Dosage: 500 MG 3 TABS Q EVENING
     Route: 048
     Dates: start: 20070801
  36. AMBIEN [Concomitant]
     Route: 048
     Dates: start: 20070801
  37. FUROSEMIDE [Concomitant]
     Route: 048
     Dates: start: 20090626
  38. PROPRANOLOL [Concomitant]
     Route: 048
     Dates: start: 20000122

REACTIONS (11)
  - RENAL FAILURE CHRONIC [None]
  - DIABETES MELLITUS INADEQUATE CONTROL [None]
  - TYPE 2 DIABETES MELLITUS [None]
  - ACCIDENTAL OVERDOSE [None]
  - OBESITY [None]
  - DIABETIC NEUROPATHY [None]
  - CONVULSION [None]
  - ORGANIC ERECTILE DYSFUNCTION [None]
  - RENAL FAILURE [None]
  - NEUROPATHY PERIPHERAL [None]
  - DIABETIC NEPHROPATHY [None]
